FAERS Safety Report 8395407-4 (Version None)
Quarter: 2012Q2

REPORT INFORMATION
  Report Type: 
  Country: None (occurrence: None)
  Receive Date: 20120530
  Receipt Date: 20120524
  Transmission Date: 20120825
  Serious: Yes (Hospitalization, Other)
  Sender: FDA-Public Use
  Company Number: JP-PFIZER INC-2012095601

PATIENT
  Age: 74 Year
  Sex: Female
  Weight: 48 kg

DRUGS (1)
  1. CORTRIL [Suspect]
     Indication: HYPOPITUITARISM
     Dosage: 15 MG DAILY (10 MG IN THE MORNING AND 5 MG IN THE EVENING)(10 MG IN MORNING AND 5 MG IN EVENING)
     Route: 048
     Dates: start: 20110824

REACTIONS (1)
  - DIABETES INSIPIDUS [None]
